FAERS Safety Report 5431172-8 (Version None)
Quarter: 2007Q3

REPORT INFORMATION
  Report Type: 
  Country: None (occurrence: None)
  Receive Date: 20070830
  Receipt Date: 20070314
  Transmission Date: 20080115
  Serious: No
  Sender: FDA-Public Use
  Company Number: A0643221A

PATIENT
  Age: 38 Year
  Sex: Female

DRUGS (2)
  1. WELLBUTRIN XL [Suspect]
     Indication: DEPRESSION
     Dosage: 150MG PER DAY
     Route: 048
  2. SYNTHROID [Concomitant]

REACTIONS (6)
  - COUGH [None]
  - FATIGUE [None]
  - IRRITABILITY [None]
  - LIBIDO INCREASED [None]
  - MUSCLE TIGHTNESS [None]
  - PAIN [None]
